FAERS Safety Report 8297621-5 (Version None)
Quarter: 2012Q2

REPORT INFORMATION
  Report Type: 
  Country: None (occurrence: None)
  Receive Date: 20120419
  Receipt Date: 20120417
  Transmission Date: 20120825
  Serious: Yes (Hospitalization, Other)
  Sender: FDA-Public Use
  Company Number: CA-ABBOTT-12P-028-0920708-00

PATIENT
  Sex: Female

DRUGS (2)
  1. HUMIRA [Suspect]
     Indication: CROHN'S DISEASE
     Dosage: WEEKLY
     Route: 058
     Dates: start: 20120327
  2. HUMIRA [Suspect]
     Indication: CROHN'S DISEASE
     Dosage: WEEKLY
     Route: 058
     Dates: start: 20080305, end: 20120327

REACTIONS (5)
  - GASTRIC DISORDER [None]
  - CROHN'S DISEASE [None]
  - GASTROINTESTINAL TUBE INSERTION [None]
  - VOMITING [None]
  - NAUSEA [None]
